FAERS Safety Report 7465874-9 (Version None)
Quarter: 2011Q2

REPORT INFORMATION
  Report Type: 
  Country: None (occurrence: None)
  Receive Date: 20110509
  Receipt Date: 20100412
  Transmission Date: 20111010
  Serious: No
  Sender: FDA-Public Use
  Company Number: US-ALEXION-A201000293

PATIENT
  Sex: Male

DRUGS (6)
  1. WARFARIN [Concomitant]
     Dosage: UNK
     Route: 048
  2. SOLIRIS [Suspect]
     Indication: PAROXYSMAL NOCTURNAL HAEMOGLOBINURIA
     Dosage: 600 MG, QW
     Route: 042
     Dates: start: 20071106, end: 20071127
  3. FLEXERIL [Concomitant]
     Dosage: UNK
     Route: 048
  4. SOLIRIS [Suspect]
     Dosage: 900 MG, UNK
     Route: 042
     Dates: start: 20071204
  5. MULTI-VITAMINS [Concomitant]
     Dosage: UNK
     Route: 048
  6. FOLATE [Concomitant]
     Dosage: UNK
     Route: 048

REACTIONS (1)
  - ANAEMIA [None]
